FAERS Safety Report 20817392 (Version 2)
Quarter: 2022Q2

REPORT INFORMATION
  Report Type: Spontaneous
  Country: ES (occurrence: ES)
  Receive Date: 20220512
  Receipt Date: 20220520
  Transmission Date: 20220721
  Serious: Yes (Other)
  Sender: FDA-Public Use
  Company Number: ES-TEVA-2022-ES-2035975

PATIENT
  Age: 54 Year
  Sex: Female

DRUGS (5)
  1. OMEPRAZOLE [Suspect]
     Active Substance: OMEPRAZOLE
     Indication: Abdominal pain upper
     Dosage: 20 MILLIGRAM DAILY;
     Route: 048
  2. LEXATIN [Concomitant]
     Dosage: 9 MILLIGRAM DAILY;
     Route: 065
  3. LORATADINE [Concomitant]
     Active Substance: LORATADINE
     Dosage: 10 MILLIGRAM DAILY;
     Route: 065
  4. MIRTAZAPINE [Concomitant]
     Active Substance: MIRTAZAPINE
     Route: 065
  5. DALANCIN [Concomitant]
     Route: 065

REACTIONS (4)
  - Kidney infection [Not Recovered/Not Resolved]
  - Allergic reaction to excipient [Not Recovered/Not Resolved]
  - Cystitis [Not Recovered/Not Resolved]
  - Renal pain [Not Recovered/Not Resolved]
